FAERS Safety Report 12395584 (Version 3)
Quarter: 2016Q4

REPORT INFORMATION
  Report Type: Spontaneous
  Country: DE (occurrence: DE)
  Receive Date: 20160523
  Receipt Date: 20161104
  Transmission Date: 20170207
  Serious: Yes (Hospitalization, Other)
  Sender: FDA-Public Use
  Company Number: DE-BRISTOL-MYERS SQUIBB COMPANY-BMS-2016-038615

PATIENT
  Age: 57 Year
  Sex: Male

DRUGS (2)
  1. DAKLINZA [Suspect]
     Active Substance: DACLATASVIR
     Indication: CHRONIC HEPATITIS C
     Dosage: UNK
     Route: 065
     Dates: start: 201510, end: 201601
  2. SOVALDI [Suspect]
     Active Substance: SOFOSBUVIR
     Indication: CHRONIC HEPATITIS C
     Dosage: UNK
     Route: 065
     Dates: start: 201510, end: 201601

REACTIONS (13)
  - Disorientation [Recovering/Resolving]
  - Tongue biting [Recovered/Resolved]
  - Gait disturbance [Recovering/Resolving]
  - Psoriasis [Unknown]
  - Musculoskeletal discomfort [Recovering/Resolving]
  - Headache [Not Recovered/Not Resolved]
  - Loss of consciousness [Recovered/Resolved]
  - Disturbance in attention [Recovering/Resolving]
  - Dizziness [Recovering/Resolving]
  - Hyperhidrosis [Recovering/Resolving]
  - Pain [Recovering/Resolving]
  - Seizure [Recovering/Resolving]
  - Dyspnoea [Recovering/Resolving]

NARRATIVE: CASE EVENT DATE: 201601
